FAERS Safety Report 10593406 (Version 1)
Quarter: 2014Q4

REPORT INFORMATION
  Report Type: Spontaneous
  Country: IR (occurrence: IR)
  Receive Date: 20141119
  Receipt Date: 20141119
  Transmission Date: 20150529
  Serious: Yes (Hospitalization)
  Sender: FDA-Public Use
  Company Number: PHHY2014IR146824

PATIENT
  Age: 62 Year
  Sex: Female

DRUGS (6)
  1. ZOLPIDEM [Suspect]
     Active Substance: ZOLPIDEM\ZOLPIDEM TARTRATE
     Indication: INSOMNIA
     Dosage: 10 MG, UNK
     Route: 065
  2. OPIUM//PAPAVER SOMNIFERUM [Concomitant]
     Indication: EUPHORIC MOOD
  3. ZOLPIDEM [Suspect]
     Active Substance: ZOLPIDEM\ZOLPIDEM TARTRATE
     Indication: FEELING OF RELAXATION
     Dosage: 570 MG, QD
     Route: 065
  4. OPIUM//PAPAVER SOMNIFERUM [Concomitant]
     Indication: FEELING OF RELAXATION
  5. ZOLPIDEM [Suspect]
     Active Substance: ZOLPIDEM\ZOLPIDEM TARTRATE
     Indication: EUPHORIC MOOD
  6. OPIUM//PAPAVER SOMNIFERUM [Concomitant]
     Indication: MENTAL DISORDER
     Route: 048

REACTIONS (15)
  - Anxiety [Recovered/Resolved]
  - Headache [Recovered/Resolved]
  - Asthenia [Recovered/Resolved]
  - Aggression [Recovered/Resolved]
  - Dizziness [Recovered/Resolved]
  - Drug abuse [Recovered/Resolved]
  - Drug withdrawal syndrome [Recovered/Resolved]
  - Chills [Recovered/Resolved]
  - Irritability [Recovered/Resolved]
  - Increased appetite [Recovered/Resolved]
  - Agitation [Recovered/Resolved]
  - Insomnia [Recovered/Resolved]
  - Crying [Recovered/Resolved]
  - Impatience [Recovered/Resolved]
  - Restlessness [Recovered/Resolved]
